FAERS Safety Report 12699237 (Version 2)
Quarter: 2016Q3

REPORT INFORMATION
  Report Type: Spontaneous
  Country: US (occurrence: US)
  Receive Date: 20160830
  Receipt Date: 20160831
  Transmission Date: 20161109
  Serious: Yes (Other)
  Sender: FDA-Public Use
  Company Number: US-JNJFOC-20160815317

PATIENT
  Age: 30 Year
  Sex: Male
  Weight: 90.72 kg

DRUGS (1)
  1. LISTERINE HEALTHY WHITE ANTICAVITY FLUORIDE GENTLE CLEAN MINT [Suspect]
     Active Substance: SODIUM FLUORIDE
     Indication: DENTAL DISORDER PROPHYLAXIS
     Dosage: LESS THEN A MOUTHFUL FOR ABOUT THREE WEEKS
     Route: 048
     Dates: end: 20160814

REACTIONS (3)
  - Application site exfoliation [Not Recovered/Not Resolved]
  - Wrong technique in product usage process [Unknown]
  - Burn oral cavity [Recovering/Resolving]

NARRATIVE: CASE EVENT DATE: 20160814
